FAERS Safety Report 8740151 (Version 2)
Quarter: 2013Q1

REPORT INFORMATION
  Report Type: Spontaneous
  Country: FR (occurrence: FR)
  Receive Date: 20120823
  Receipt Date: 20130125
  Transmission Date: 20140127
  Serious: Yes (Hospitalization)
  Sender: FDA-Public Use
  Company Number: FR-009507513-1208FRA007792

PATIENT
  Age: 86 Year
  Sex: Female

DRUGS (15)
  1. NOROXINE [Suspect]
     Indication: BACTERIAL PYELONEPHRITIS
     Dosage: 400 MG, BID
     Route: 048
     Dates: start: 20120403, end: 20120424
  2. PREVISCAN [Suspect]
     Indication: ATRIAL FIBRILLATION
     Dosage: UNK UNK, PRN
     Route: 048
     Dates: start: 200809, end: 20120322
  3. PREVISCAN [Suspect]
     Dosage: UNK UNK, PRN
     Route: 048
     Dates: start: 20120413, end: 20120426
  4. LERCAN [Concomitant]
     Route: 048
  5. NEBIVOLOL [Concomitant]
     Route: 048
  6. CACIT VITAMINE D3 [Concomitant]
     Route: 048
  7. LAROXYL [Concomitant]
  8. TOPALGIC LP [Concomitant]
     Route: 048
  9. ACETAMINOPHEN [Concomitant]
  10. AMLOR [Concomitant]
  11. LASILIX [Concomitant]
  12. TAHOR [Concomitant]
  13. TRANSIPEG [Concomitant]
  14. VASOBRAL (CINNARIZINE) [Concomitant]
  15. LANSOYL [Concomitant]

REACTIONS (11)
  - International normalised ratio increased [Recovered/Resolved]
  - Ischaemic stroke [None]
  - Atrial fibrillation [None]
  - Vomiting [None]
  - Overdose [None]
  - Tachycardia [None]
  - Inflammation [None]
  - Dyslipidaemia [None]
  - Ankle fracture [None]
  - Convulsion [None]
  - Cognitive disorder [None]
